FAERS Safety Report 26178961 (Version 1)
Quarter: 2025Q4

REPORT INFORMATION
  Report Type: Spontaneous
  Country: EU (occurrence: EU)
  Receive Date: 20251219
  Receipt Date: 20251219
  Transmission Date: 20260117
  Serious: Yes (Other)
  Sender: TEVA
  Company Number: None

PATIENT
  Age: 78 Year
  Sex: Female

DRUGS (5)
  1. LEVOFLOXACIN [Suspect]
     Active Substance: LEVOFLOXACIN
     Indication: Post procedural infection
     Dosage: LEVOFLOXACIN (2791A)
     Route: 048
     Dates: start: 20250925, end: 20251017
  2. ALENDRONATE SODIUM [Concomitant]
     Active Substance: ALENDRONATE SODIUM
     Indication: Osteoporosis
     Dosage: ALENDRONATE SODIUM (2781SO)
     Route: 048
     Dates: start: 2024
  3. RIFAMPIN [Concomitant]
     Active Substance: RIFAMPIN
     Indication: Post procedural infection
     Dosage: RIFAMPICIN (2273A)
     Route: 048
     Dates: start: 20250925, end: 20250929
  4. DULOXETINE HYDROCHLORIDE [Concomitant]
     Active Substance: DULOXETINE HYDROCHLORIDE
     Indication: Neuralgia
     Dosage: DULOXETINE HYDROCHLORIDE (7421CH)
     Route: 048
     Dates: start: 2025
  5. AMLODIPINE BESYLATE\HYDROCHLOROTHIAZIDE\OLMESARTAN MEDOXOMIL [Concomitant]
     Active Substance: AMLODIPINE BESYLATE\HYDROCHLOROTHIAZIDE\OLMESARTAN MEDOXOMIL
     Indication: Essential hypertension
     Dosage: 20 MG/5 MG/12.5 MG, 28 TABLETS
     Route: 048
     Dates: start: 2024

REACTIONS (1)
  - Tendonitis [Recovered/Resolved]

NARRATIVE: CASE EVENT DATE: 20251017
